FAERS Safety Report 7157421-6 (Version None)
Quarter: 2010Q4

REPORT INFORMATION
  Report Type: 
  Country: None (occurrence: None)
  Receive Date: 20101214
  Receipt Date: 20101208
  Transmission Date: 20110411
  Serious: Yes (Other)
  Sender: FDA-Public Use
  Company Number: A0880515A

PATIENT
  Age: 71 Year
  Sex: Female

DRUGS (5)
  1. TYKERB [Suspect]
     Indication: BREAST CANCER
     Dosage: 1250MG PER DAY
     Route: 048
     Dates: start: 20100903, end: 20100910
  2. EFFEXOR XR [Concomitant]
  3. TRAZODONE [Concomitant]
  4. TPN [Concomitant]
  5. MULTI-VITAMIN [Concomitant]

REACTIONS (12)
  - ACNE [None]
  - CHROMATURIA [None]
  - DIARRHOEA [None]
  - DIARRHOEA HAEMORRHAGIC [None]
  - DIZZINESS [None]
  - DYSURIA [None]
  - EPISTAXIS [None]
  - GLOSSODYNIA [None]
  - HEPATIC PAIN [None]
  - ORAL PAIN [None]
  - PAIN OF SKIN [None]
  - PROCTALGIA [None]
